FAERS Safety Report 7176640-6 (Version None)
Quarter: 2010Q4

REPORT INFORMATION
  Report Type: 
  Country: None (occurrence: None)
  Receive Date: 20101220
  Receipt Date: 20101210
  Transmission Date: 20110411
  Serious: Yes (Hospitalization, Other)
  Sender: FDA-Public Use
  Company Number: US-ELI_LILLY_AND_COMPANY-US201012004171

PATIENT
  Sex: Male
  Weight: 136.51 kg

DRUGS (12)
  1. PRASUGREL HYDROCHLORIDE [Suspect]
     Indication: ACUTE CORONARY SYNDROME
     Dosage: 60 MG, ONCE
     Dates: start: 20101115, end: 20101115
  2. PRASUGREL HYDROCHLORIDE [Suspect]
     Dosage: 10 MG, DAILY (1/D)
     Dates: start: 20101116
  3. ASPIRIN [Concomitant]
     Dosage: 325 MG, DAILY (1/D)
     Dates: start: 20101116
  4. PROTONIX [Concomitant]
     Indication: PROPHYLAXIS
     Dosage: 40 MG, DAILY (1/D)
     Route: 048
  5. ZOCOR [Concomitant]
     Indication: HYPERLIPIDAEMIA
     Dosage: 40 MG, DAILY (1/D)
     Route: 048
     Dates: start: 20101115
  6. NORVASC [Concomitant]
     Indication: HYPERTENSION
     Dosage: 10 MG, DAILY (1/D)
     Route: 048
     Dates: start: 20101118
  7. COREG [Concomitant]
     Indication: HYPERTENSION
     Dosage: 12.5 MG, DAILY (1/D)
     Route: 048
     Dates: start: 20101112
  8. NOVOLIN N [Concomitant]
     Indication: TYPE 1 DIABETES MELLITUS
     Dosage: 36 IU, DAILY (1/D)
     Route: 058
     Dates: start: 20101113
  9. NOVOLIN N [Concomitant]
     Dosage: 20 IU, DAILY (1/D)
     Route: 058
     Dates: start: 20101112
  10. NOVOLOG [Concomitant]
     Indication: TYPE 1 DIABETES MELLITUS
     Dosage: 10 IU, 2/D
     Route: 058
     Dates: start: 20101113
  11. NOVOLOG [Concomitant]
     Dosage: 21 IU, 3/D
     Route: 058
     Dates: start: 20101113
  12. NOVOLOG [Concomitant]
     Dosage: 5 IU, DAILY (1/D)
     Route: 058
     Dates: start: 20101112

REACTIONS (2)
  - ACUTE MYOCARDIAL INFARCTION [None]
  - CARDIAC FAILURE CONGESTIVE [None]
